FAERS Safety Report 8618667-0 (Version None)
Quarter: 2012Q3

REPORT INFORMATION
  Report Type: 
  Country: None (occurrence: None)
  Receive Date: 20120824
  Receipt Date: 20120815
  Transmission Date: 20120928
  Serious: Yes (Other)
  Sender: FDA-Public Use
  Company Number: BR-US-EMD SERONO, INC.-7155015

PATIENT
  Sex: Female

DRUGS (1)
  1. REBIF [Suspect]
     Indication: RELAPSING-REMITTING MULTIPLE SCLEROSIS
     Dates: start: 20120202

REACTIONS (4)
  - EXPANDED DISABILITY STATUS SCALE SCORE INCREASED [None]
  - CONDITION AGGRAVATED [None]
  - MULTIPLE SCLEROSIS RELAPSE [None]
  - PYREXIA [None]
